FAERS Safety Report 9472533 (Version 2)
Quarter: 2013Q3

REPORT INFORMATION
  Report Type: Report from Study
  Country: US (occurrence: US)
  Receive Date: 20130823
  Receipt Date: 20130916
  Transmission Date: 20140515
  Serious: Yes (Death, Hospitalization)
  Sender: FDA-Public Use
  Company Number: US-BAYER-2013-101131

PATIENT
  Age: 41 Year
  Sex: Male

DRUGS (1)
  1. STIVARGA [Suspect]
     Indication: COLON CANCER
     Dosage: 160 MG, QD, 4 X 40
     Route: 048
     Dates: start: 20130723

REACTIONS (4)
  - Death [Fatal]
  - Hepatic neoplasm [None]
  - Pneumonia [None]
  - Infection [None]
